FAERS Safety Report 21748879 (Version 2)
Quarter: 2023Q2

REPORT INFORMATION
  Report Type: Spontaneous
  Country: FI (occurrence: FI)
  Receive Date: 20221219
  Receipt Date: 20230406
  Transmission Date: 20230721
  Serious: Yes (Other)
  Sender: FDA-Public Use
  Company Number: FI-MACURE-2022000066

PATIENT
  Sex: Female

DRUGS (3)
  1. NITROGLYCERIN [Suspect]
     Active Substance: NITROGLYCERIN
     Indication: Hypertension
     Dosage: UNK
     Route: 065
  2. ROPIVACAINE [Concomitant]
     Active Substance: ROPIVACAINE
     Indication: Electrocardiogram QT prolonged
     Dosage: UNK
     Route: 065
  3. LABETALOL [Concomitant]
     Active Substance: LABETALOL\LABETALOL HYDROCHLORIDE
     Indication: Hypertension
     Dosage: UNK
     Route: 065

REACTIONS (5)
  - Stress cardiomyopathy [Unknown]
  - Myocardial necrosis marker increased [Unknown]
  - Electrocardiogram QT prolonged [Unknown]
  - Procedural pain [Unknown]
  - Hypotension [Unknown]
